FAERS Safety Report 6061606-X (Version None)
Quarter: 2009Q1

REPORT INFORMATION
  Report Type: 
  Country: None (occurrence: None)
  Receive Date: 20090202
  Receipt Date: 20090123
  Transmission Date: 20090719
  Serious: Yes (Hospitalization)
  Sender: FDA-Public Use
  Company Number: A0724630A

PATIENT
  Age: 63 Year
  Sex: Male
  Weight: 135.5 kg

DRUGS (4)
  1. AVANDIA [Suspect]
     Dosage: 8MG PER DAY
     Route: 048
     Dates: start: 20011102, end: 20050101
  2. ZOCOR [Concomitant]
  3. DIOVAN [Concomitant]
  4. PROTONIX [Concomitant]

REACTIONS (3)
  - CARDIAC FAILURE CONGESTIVE [None]
  - MYOCARDIAL INFARCTION [None]
  - WEIGHT INCREASED [None]
